FAERS Safety Report 19141678 (Version 3)
Quarter: 2021Q3

REPORT INFORMATION
  Report Type: Spontaneous
  Country: IT (occurrence: IT)
  Receive Date: 20210415
  Receipt Date: 20210707
  Transmission Date: 20211014
  Serious: Yes (Death, Other)
  Sender: FDA-Public Use
  Company Number: IT-GILEAD-2021-0524879

PATIENT
  Sex: Male

DRUGS (1)
  1. YESCARTA [Suspect]
     Active Substance: AXICABTAGENE CILOLEUCEL
     Indication: DIFFUSE LARGE B-CELL LYMPHOMA
     Dosage: UNK
     Route: 042
     Dates: start: 20210406, end: 20210406

REACTIONS (9)
  - Abdominal pain [Recovered/Resolved]
  - Tachycardia [Unknown]
  - Death [Fatal]
  - Pleural effusion [Unknown]
  - Neutrophil count abnormal [Unknown]
  - Abdominal discomfort [Unknown]
  - Cytokine release syndrome [Recovered/Resolved]
  - Pyrexia [Not Recovered/Not Resolved]
  - Hypoalbuminaemia [Unknown]

NARRATIVE: CASE EVENT DATE: 20210411
